FAERS Safety Report 4315922-X (Version None)
Quarter: 2004Q1

REPORT INFORMATION
  Report Type: 
  Country: None (occurrence: None)
  Receive Date: 20040310
  Receipt Date: 20040223
  Transmission Date: 20041129
  Serious: Yes (Disabling)
  Sender: FDA-Public Use
  Company Number: 2003CG01775

PATIENT
  Age: 29 Year
  Sex: Male

DRUGS (5)
  1. NAROPIN [Suspect]
     Indication: MUSCLE CONTRACTURE
     Dosage: 10 ML ONCE SQ
     Route: 058
     Dates: start: 20030114, end: 20030114
  2. ANAFRANIL [Concomitant]
  3. LEXOMIL [Concomitant]
  4. RIVOTRIL [Concomitant]
  5. HAVLANE [Concomitant]

REACTIONS (6)
  - AMYOTROPHY [None]
  - DENERVATION ATROPHY [None]
  - DRUG TOXICITY [None]
  - JOINT RANGE OF MOTION DECREASED [None]
  - NEURALGIC AMYOTROPHY [None]
  - SPINAL OSTEOARTHRITIS [None]
